FAERS Safety Report 4318622-5 (Version None)
Quarter: 2004Q1

REPORT INFORMATION
  Report Type: 
  Country: None (occurrence: None)
  Receive Date: 20040315
  Receipt Date: 20040304
  Transmission Date: 20041129
  Serious: Yes (Hospitalization, Disabling, Other)
  Sender: FDA-Public Use
  Company Number: PT-JNJFOC-20040300243

PATIENT
  Age: 40 Year
  Sex: Male

DRUGS (7)
  1. REMICADE [Suspect]
     Indication: RHEUMATOID ARTHRITIS
     Dosage: 3 MG/KG
  2. METHOTREXATE [Concomitant]
  3. FLURBIPROFEN [Concomitant]
  4. PREDNSIOLONE (PREDNISOLONE) [Concomitant]
  5. CALCIUM (CALCIUM) [Concomitant]
  6. MISOPROSTOL [Concomitant]
  7. FOLIFER (FERRO-FOLSAN) [Concomitant]

REACTIONS (4)
  - DIARRHOEA [None]
  - NOCTURIA [None]
  - PERITONEAL TUBERCULOSIS [None]
  - PULMONARY TUBERCULOSIS [None]
